FAERS Safety Report 12305695 (Version 1)
Quarter: 2016Q2

REPORT INFORMATION
  Report Type: Spontaneous
  Country: US (occurrence: US)
  Receive Date: 20160426
  Receipt Date: 20160426
  Transmission Date: 20160815
  Serious: Yes (Other)
  Sender: FDA-Public Use
  Company Number: US-CIPLA LTD.-2016US04014

PATIENT

DRUGS (2)
  1. LAMOTRIGINE. [Suspect]
     Active Substance: LAMOTRIGINE
     Indication: EPILEPSY
     Dosage: 450 MG/DAY
     Route: 065
  2. PREGABALIN. [Suspect]
     Active Substance: PREGABALIN
     Indication: EPILEPSY
     Dosage: UNK
     Route: 065

REACTIONS (8)
  - Anticonvulsant drug level increased [Unknown]
  - Diplopia [Unknown]
  - Agitation [Unknown]
  - Hallucination [Unknown]
  - Vertigo [Unknown]
  - Delusion [Unknown]
  - Confusional state [Unknown]
  - Aggression [Unknown]
